FAERS Safety Report 6578758-5 (Version None)
Quarter: 2010Q1

REPORT INFORMATION
  Report Type: 
  Country: None (occurrence: None)
  Receive Date: 20100202
  Receipt Date: 20100125
  Transmission Date: 20100710
  Serious: Yes (Hospitalization)
  Sender: FDA-Public Use
  Company Number: DAV-AE-GLY-10-001

PATIENT
  Age: 18 Month
  Sex: Female

DRUGS (1)
  1. GLYBURIDE [Suspect]

REACTIONS (12)
  - CHILD ABUSE [None]
  - DEPRESSED LEVEL OF CONSCIOUSNESS [None]
  - HYPERHIDROSIS [None]
  - HYPERINSULINISM [None]
  - HYPOGLYCAEMIA [None]
  - INSULIN C-PEPTIDE INCREASED [None]
  - LETHARGY [None]
  - MALAISE [None]
  - SCREAMING [None]
  - TACHYCARDIA [None]
  - TREMOR [None]
  - VOMITING [None]
